FAERS Safety Report 4457581-1 (Version None)
Quarter: 2004Q3

REPORT INFORMATION
  Report Type: 
  Country: None (occurrence: None)
  Receive Date: 20040902
  Receipt Date: 20040525
  Transmission Date: 20050211
  Serious: No
  Sender: FDA-Public Use
  Company Number: 200324678BWH

PATIENT
  Age: 51 Year
  Sex: Male
  Weight: 59.8748 kg

DRUGS (6)
  1. LEVITRA [Suspect]
     Indication: ERECTILE DYSFUNCTION
     Dosage: 10 MG, PRN, ORAL
     Route: 048
     Dates: start: 20030925
  2. LEVITRA [Suspect]
     Indication: PROSTATECTOMY
     Dosage: 10 MG, PRN, ORAL
     Route: 048
     Dates: start: 20030925
  3. LEVITRA [Suspect]
     Indication: ERECTILE DYSFUNCTION
     Dosage: 10 MG, PRN, ORAL
     Route: 048
     Dates: start: 20040523
  4. LEVITRA [Suspect]
     Indication: PROSTATECTOMY
     Dosage: 10 MG, PRN, ORAL
     Route: 048
     Dates: start: 20040523
  5. VIAGRA [Concomitant]
  6. MUSE [Concomitant]

REACTIONS (7)
  - DIZZINESS [None]
  - DYSPNOEA [None]
  - ERECTILE DYSFUNCTION [None]
  - HEADACHE [None]
  - HEART RATE INCREASED [None]
  - HYPOTENSION [None]
  - NAUSEA [None]
